FAERS Safety Report 5101907-2 (Version None)
Quarter: 2006Q3

REPORT INFORMATION
  Report Type: 
  Country: None (occurrence: None)
  Receive Date: 20060907
  Receipt Date: 20060824
  Transmission Date: 20061208
  Serious: Yes (Hospitalization, Other)
  Sender: FDA-Public Use
  Company Number: A-US2006-12240

PATIENT
  Age: 74 Year
  Sex: Female
  Weight: 52.6 kg

DRUGS (2)
  1. TRACLEER [Suspect]
     Indication: PULMONARY HYPERTENSION
     Dosage: 125 MG, BID, ORAL
     Route: 048
     Dates: start: 20060215, end: 20060317
  2. WARFARIN SODIUM [Concomitant]

REACTIONS (12)
  - ASTHMA [None]
  - BLISTER [None]
  - BRONCHIECTASIS [None]
  - CARDIAC FAILURE CONGESTIVE [None]
  - CHRONIC OBSTRUCTIVE PULMONARY DISEASE [None]
  - CONDITION AGGRAVATED [None]
  - COR PULMONALE [None]
  - EPISTAXIS [None]
  - LUNG INFECTION PSEUDOMONAL [None]
  - MALAISE [None]
  - PULMONARY OEDEMA [None]
  - TREATMENT NONCOMPLIANCE [None]
